FAERS Safety Report 6104210-7 (Version None)
Quarter: 2009Q1

REPORT INFORMATION
  Report Type: 
  Country: None (occurrence: None)
  Receive Date: 20090305
  Receipt Date: 20090220
  Transmission Date: 20090719
  Serious: Yes (Other)
  Sender: FDA-Public Use
  Company Number: GB-PFIZER INC-2009170008

PATIENT

DRUGS (2)
  1. ZYVOX [Suspect]
     Indication: BRAIN ABSCESS
     Dosage: 600 MG, 2X/DAY
     Route: 048
     Dates: start: 20081203, end: 20081226
  2. CHLORAMPHENICOL AND CHLORAMPHENICOL PALMITATE AND CHLORAMPHENICOL SODI [Suspect]
     Indication: BRAIN ABSCESS
     Dosage: 1250 MG, 4X/DAY
     Route: 048
     Dates: start: 20081203, end: 20090116

REACTIONS (3)
  - PANCYTOPENIA [None]
  - PLATELET COUNT DECREASED [None]
  - THROMBOCYTOPENIA [None]
